FAERS Safety Report 16839186 (Version 1)
Quarter: 2019Q4

REPORT INFORMATION
  Report Type: Spontaneous
  Country: US (occurrence: US)
  Receive Date: 20190920
  Receipt Date: 20190920
  Transmission Date: 20200122
  Serious: Yes (Other)
  Sender: FDA-Public Use
  Company Number: None

PATIENT
  Age: 82 Year
  Sex: Female
  Weight: 86.4 kg

DRUGS (7)
  1. LISINOPRIL. [Concomitant]
     Active Substance: LISINOPRIL
  2. AREDS [Concomitant]
     Active Substance: MINERALS\VITAMINS
  3. HEMPVANA HEEL TASTIC [Suspect]
     Active Substance: CANNABIS SATIVA SEED OIL\HERBALS
     Indication: SKIN FISSURES
     Route: 061
     Dates: start: 20190919, end: 20190919
  4. VITAMIN D [Concomitant]
     Active Substance: VITAMIN D NOS
  5. LOPRESSOR [Concomitant]
     Active Substance: METOPROLOL TARTRATE
  6. XANAX [Concomitant]
     Active Substance: ALPRAZOLAM
  7. B6 [Concomitant]
     Active Substance: PYRIDOXINE HYDROCHLORIDE

REACTIONS (5)
  - Ear discomfort [None]
  - Tinnitus [None]
  - Blood pressure increased [None]
  - Application site erythema [None]
  - Application site warmth [None]

NARRATIVE: CASE EVENT DATE: 20190919
